FAERS Safety Report 10213012 (Version 1)
Quarter: 2014Q2

REPORT INFORMATION
  Report Type: Report from Study
  Country: ES (occurrence: ES)
  Receive Date: 20140603
  Receipt Date: 20140603
  Transmission Date: 20141212
  Serious: Yes (Other)
  Sender: FDA-Public Use
  Company Number: ES-ROCHE-1410913

PATIENT
  Age: 45 Year
  Sex: Female
  Weight: 64.3 kg

DRUGS (3)
  1. PEG-INTERFERON ALFA 2A [Suspect]
     Indication: CHRONIC HEPATITIS C
     Route: 058
     Dates: start: 20130809, end: 20131106
  2. RIBAVIRIN [Suspect]
     Indication: CHRONIC HEPATITIS C
     Route: 048
     Dates: start: 20130809, end: 20131106
  3. BOCEPREVIR [Suspect]
     Indication: CHRONIC HEPATITIS C
     Route: 048
     Dates: start: 20130906, end: 20131106

REACTIONS (1)
  - Intestinal obstruction [Recovered/Resolved]
